FAERS Safety Report 13993071 (Version 2)
Quarter: 2018Q1

REPORT INFORMATION
  Report Type: Spontaneous
  Country: US (occurrence: US)
  Receive Date: 20170920
  Receipt Date: 20180110
  Transmission Date: 20180508
  Serious: No
  Sender: FDA-Public Use
  Company Number: US-PFIZER INC-2017325101

PATIENT
  Age: 65 Year
  Sex: Female

DRUGS (44)
  1. FLUOROMETHOLONE. [Concomitant]
     Active Substance: FLUOROMETHOLONE
     Dosage: UNK [EA EYE (1 PM)]
     Route: 047
  2. GAS RELIEF [Concomitant]
     Active Substance: DIMETHICONE
     Dosage: 500 MG, DAILY (125 MG 4 DAILY)
  3. KLOR-CON [Concomitant]
     Active Substance: POTASSIUM CHLORIDE
     Dosage: 20 MEQ, 1X/DAY (20 MEQ 1 AM)
  4. FLU [Concomitant]
     Active Substance: INFLUENZA VIRUS VACCINE
     Dosage: UNK
  5. FOLIC ACID. [Concomitant]
     Active Substance: FOLIC ACID
     Dosage: 1 MG, DAILY
     Dates: start: 20141120
  6. KLOR-CON M20 [Concomitant]
     Active Substance: POTASSIUM CHLORIDE
     Dosage: UNK UNK, 2X/DAY
     Dates: start: 20141120
  7. PREDNISONE. [Concomitant]
     Active Substance: PREDNISONE
     Dosage: UNK [7 1/2  MG AM (1-5 MG 2% 1 MQ)]
  8. RECLAST [Concomitant]
     Active Substance: ZOLEDRONIC ACID
     Dosage: UNK (ONCE A YEAR)
  9. IRON [Concomitant]
     Active Substance: IRON
     Dosage: 27 MG, 1X/DAY (1 NIGHT)
  10. VENTOLIN HFA [Concomitant]
     Active Substance: ALBUTEROL SULFATE
     Dosage: UNK UNK, AS NEEDED (108 (90 BASE) MCG/ACT INHAERS)
     Route: 055
     Dates: start: 20150427
  11. VITAMIN C [Concomitant]
     Active Substance: ASCORBIC ACID
     Dosage: 500 MG, DAILY
     Route: 048
     Dates: start: 20151203
  12. ACTEMRA [Concomitant]
     Active Substance: TOCILIZUMAB
     Dosage: UNK (8 MG/KG EVERY 4 WEEKS)
     Route: 042
     Dates: start: 20151215
  13. FLUTICASONE PROPIONATE. [Concomitant]
     Active Substance: FLUTICASONE PROPIONATE
     Dosage: UNK UNK, 1X/DAY (50 MCG/ACT SUSP TWO SPRAYS ONCE A DAY IN EACH NOSTRIL)
     Route: 045
     Dates: start: 20170426
  14. PREDNISONE. [Concomitant]
     Active Substance: PREDNISONE
     Dosage: 5 MG, 1X/DAY (1 TAB BY MOUTH ONCE DAILY)
     Route: 048
     Dates: start: 20170420
  15. VITAMIN D3 [Concomitant]
     Active Substance: CHOLECALCIFEROL
     Dosage: 1000 IU, 1X/DAY (1 AM)
  16. SYMBICORT [Concomitant]
     Active Substance: BUDESONIDE\FORMOTEROL FUMARATE DIHYDRATE
     Dosage: UNK UNK, 2X/DAY (50 MCG/ACT SUSP, TWO INHALATIONS TWICE DAILY)
     Route: 055
     Dates: start: 20170328
  17. ASPIRIN. [Concomitant]
     Active Substance: ASPIRIN
     Dosage: 81 MG, ALTERNATE DAY (1 BY MOUTH EVERY OTHER DAY)
     Route: 048
     Dates: start: 20170328
  18. TYLENOL 8HR [Concomitant]
     Active Substance: ACETAMINOPHEN
     Indication: PAIN
  19. LYRICA [Suspect]
     Active Substance: PREGABALIN
     Dosage: 50 MG, 1X/DAY
     Dates: start: 20170718
  20. PREDNISONE. [Concomitant]
     Active Substance: PREDNISONE
     Dosage: UNK (ONE DAILY WITH 3 1 MG TABS)
     Route: 048
     Dates: start: 20150302
  21. TRIAMCINOLONE ACETONIDE. [Concomitant]
     Active Substance: TRIAMCINOLONE ACETONIDE
     Dosage: UNK UNK, AS NEEDED (APPLY TO AFFECTED AREA TWICE A DAY AS NEEDED)
     Route: 061
     Dates: start: 20151116
  22. CRESTOR [Concomitant]
     Active Substance: ROSUVASTATIN CALCIUM
     Dosage: 10 MG, DAILY (EVERY DAY)
     Route: 048
     Dates: start: 20160127
  23. RECLAST [Concomitant]
     Active Substance: ZOLEDRONIC ACID
     Dosage: 5 MG, UNK (ONCE YEARLY #1)
     Route: 042
     Dates: start: 20160127
  24. DEXILANT [Concomitant]
     Active Substance: DEXLANSOPRAZOLE
     Dosage: 60 MG, 1X/DAY (ONCE DAILY BEFORE BED)
     Route: 048
     Dates: start: 20161115
  25. HYDROCODONE BITARTRATE AND ACETAMINOPHEN [Concomitant]
     Active Substance: ACETAMINOPHEN\HYDROCODONE BITARTRATE
     Dosage: UNK [(HYDROCODONE BITARTRATE 5 MG), (PARACETAMOL 325 MG)] (1-2 BY MOUTH TWICE A. DAY, NTE 4 PER DAY)
     Route: 048
     Dates: start: 20170307
  26. VALSARTAN. [Concomitant]
     Active Substance: VALSARTAN
     Dosage: 80 MG, 1X/DAY
     Route: 048
     Dates: start: 20170328
  27. TYLENOL 8HR [Concomitant]
     Active Substance: ACETAMINOPHEN
     Indication: ARTHRITIS
     Dosage: 650 MG, AS NEEDED (1 TAB BY MOUTH 4 TIMES A DAY AS NEEDED FOR PAIN)
     Route: 048
     Dates: start: 20170420
  28. ACETAMINOPHEN. [Concomitant]
     Active Substance: ACETAMINOPHEN
     Dosage: 650 MG, AS NEEDED
  29. ROSUVASTATIN CALCIUM. [Concomitant]
     Active Substance: ROSUVASTATIN CALCIUM
     Dosage: 10 MG, 1X/DAY (10 MG 1 AM)
  30. LYRICA [Suspect]
     Active Substance: PREGABALIN
     Dosage: 50 MG, 2X/DAY
  31. FOLIC ACID. [Concomitant]
     Active Substance: FOLIC ACID
     Dosage: 1 MG, 1X/DAY (1 MG NIGHT)
  32. BIOTENE DRY MOUTH [Concomitant]
     Dosage: UNK UNK, AS NEEDED
     Dates: start: 20150930
  33. HYDROCODONE BITARTRATE AND ACETAMINOPHEN [Concomitant]
     Active Substance: ACETAMINOPHEN\HYDROCODONE BITARTRATE
     Dosage: 325 MG, AS NEEDED
  34. BENADRYL [Concomitant]
     Active Substance: DIPHENHYDRAMINE HYDROCHLORIDE
     Dosage: 25 MG, 1X/DAY (25 MG 1 NIGHT)
  35. RESTASIS [Concomitant]
     Active Substance: CYCLOSPORINE
     Dosage: UNK
     Dates: start: 20141120
  36. PREDNISONE. [Concomitant]
     Active Substance: PREDNISONE
     Dosage: UNK (2.5 DAILY WITH ONE 5MG TAB)
     Route: 048
     Dates: start: 20170116
  37. IBUPROFEN. [Concomitant]
     Active Substance: IBUPROFEN
     Dosage: 200 MG, AS NEEDED (ONE BY MOUTH FOUR TIMES A DAY AS NEEDED)
     Route: 048
     Dates: start: 20170322
  38. MELATONIN [Concomitant]
     Active Substance: MELATONIN
     Dosage: 5 MG, 1X/DAY (1 CAP BY MOUTH ONCE DAILY AT BEDTIME)
     Route: 048
     Dates: start: 20170420
  39. MELATONIN [Concomitant]
     Active Substance: MELATONIN
     Dosage: 5 MG, 2X/DAY
  40. FLAXSEED [Concomitant]
     Active Substance: FLAX SEED
     Dosage: 1000 MG, 1X/DAY (1 AM NIGHT)
  41. VITAMIN D3 [Concomitant]
     Active Substance: CHOLECALCIFEROL
     Dosage: 2000 IU, DAILY (TAKE 2 BY MOUTH DAILY)
     Route: 048
     Dates: start: 20151028
  42. ACTEMRA [Concomitant]
     Active Substance: TOCILIZUMAB
     Dosage: UNK (EVERY 4 WEEKS)
  43. GAS-X [Concomitant]
     Active Substance: DIMETHICONE
     Dosage: 1 DF, 3X/DAY
     Dates: start: 20170420
  44. CETRIZINE [Concomitant]
     Active Substance: CETIRIZINE HYDROCHLORIDE
     Indication: DRUG HYPERSENSITIVITY
     Dosage: 10 MG, DAILY
     Route: 048
     Dates: start: 20170605

REACTIONS (2)
  - Condition aggravated [Unknown]
  - Pain [Unknown]
